FAERS Safety Report 4635490-2 (Version None)
Quarter: 2005Q2

REPORT INFORMATION
  Report Type: 
  Country: None (occurrence: None)
  Receive Date: 20050413
  Receipt Date: 20050330
  Transmission Date: 20051028
  Serious: Yes (Other)
  Sender: FDA-Public Use
  Company Number: PHBS2005CA03909

PATIENT
  Age: 70 Year
  Sex: Female

DRUGS (6)
  1. VISUDYNE [Suspect]
     Indication: CHOROIDAL NEOVASCULARISATION
     Dosage: 11.4 MG DAILY IV
     Route: 042
     Dates: start: 20050415, end: 20040415
  2. DIABETA [Concomitant]
  3. COVERSYL [Concomitant]
  4. HYDROCHLOROTHIAZIDE [Concomitant]
  5. CALCIUM GLUCONATE [Concomitant]
  6. VITAMIN E [Concomitant]

REACTIONS (10)
  - FIBROSIS [None]
  - INJECTION SITE EXTRAVASATION [None]
  - INJECTION SITE PAIN [None]
  - MEDIAN NERVE INJURY [None]
  - MUSCLE ATROPHY [None]
  - NECROSIS [None]
  - NERVE DEGENERATION [None]
  - NEURITIS [None]
  - PARALYSIS [None]
  - SENSORY LEVEL ABNORMAL [None]
